FAERS Safety Report 7478033-0 (Version None)
Quarter: 2011Q2

REPORT INFORMATION
  Report Type: 
  Country: None (occurrence: None)
  Receive Date: 20110513
  Receipt Date: 20110511
  Transmission Date: 20111010
  Serious: No
  Sender: FDA-Public Use
  Company Number: US-TEVA-279378USA

PATIENT
  Sex: Male

DRUGS (2)
  1. ERGOCALCIFEROL [Concomitant]
  2. COPAXONE [Suspect]
     Route: 058
     Dates: start: 20110502

REACTIONS (4)
  - INJECTION SITE REACTION [None]
  - INJECTION SITE SWELLING [None]
  - MUSCLE TWITCHING [None]
  - INJECTION SITE ERYTHEMA [None]
